FAERS Safety Report 4713997-7 (Version None)
Quarter: 2005Q3

REPORT INFORMATION
  Report Type: 
  Country: None (occurrence: None)
  Receive Date: 20050714
  Receipt Date: 20050706
  Transmission Date: 20060218
  Serious: Yes (Hospitalization)
  Sender: FDA-Public Use
  Company Number: US-BOEHRINGER INGELHEIM PHARMACEUTICALS, INC.-2005-BP-11392BP

PATIENT
  Age: 81 Year
  Sex: Female

DRUGS (4)
  1. CATAPRES-TTS-1 [Suspect]
     Indication: HYPERTENSION
     Route: 061
     Dates: start: 20031101
  2. CATAPRES-TTS-1 [Suspect]
     Route: 061
     Dates: start: 20031201
  3. CATAPRES-TTS-1 [Suspect]
     Route: 061
     Dates: end: 20040101
  4. CATAPRES-TTS-1 [Suspect]
     Route: 061
     Dates: start: 20040101, end: 20040601

REACTIONS (7)
  - APPLICATION SITE DERMATITIS [None]
  - APPLICATION SITE PRURITUS [None]
  - CARDIAC PACEMAKER INSERTION [None]
  - HAEMATOMA [None]
  - HEART RATE DECREASED [None]
  - HYPERTENSION [None]
  - PROCEDURAL COMPLICATION [None]
